FAERS Safety Report 8770668 (Version 1)
Quarter: 2012Q4

REPORT INFORMATION
  Report Type: 
  Country: IT (occurrence: IT)
  Receive Date: 20120906
  Receipt Date: 20120906
  Transmission Date: 20130627
  Serious: Yes (Death)
  Sender: FDA-Public Use
  Company Number: PHHY2009IT071233

PATIENT

DRUGS (9)
  1. NEORAL [Suspect]
     Indication: RENAL TRANSPLANT
     Dosage: 5 mg, QD
     Route: 048
  2. SIMULECT [Suspect]
     Indication: RENAL TRANSPLANT
     Dosage: 20 mg, UNK
  3. RAPAMUNE [Suspect]
     Indication: RENAL TRANSPLANT
     Dosage: 6 mg, QD
  4. RAPAMUNE [Suspect]
     Dosage: 2 mg, QD
  5. METHYLPREDNISOLONE [Concomitant]
     Indication: RENAL TRANSPLANT
     Dosage: 500 mg, UNK
  6. METHYLPREDNISOLONE [Concomitant]
     Dosage: 200 mg, UNK
  7. METHYLPREDNISOLONE [Concomitant]
     Dosage: 100 mg, UNK
  8. METHYLPREDNISOLONE [Concomitant]
     Dosage: 50 mg, UNK
  9. METHYLPREDNISOLONE [Concomitant]
     Dosage: 20 mg, UNK

REACTIONS (1)
  - Glomerulonephritis membranoproliferative [Fatal]
